FAERS Safety Report 17749416 (Version 1)
Quarter: 2020Q2

REPORT INFORMATION
  Report Type: Other
  Country: JP (occurrence: JP)
  Receive Date: 20200506
  Receipt Date: 20200506
  Transmission Date: 20200714
  Serious: Yes (Other)
  Sender: FDA-Public Use
  Company Number: JP-LUPIN PHARMACEUTICALS INC.-2019-07448

PATIENT
  Age: 15 Year
  Sex: Female

DRUGS (2)
  1. ZOLPIDEM [Suspect]
     Active Substance: ZOLPIDEM TARTRATE
     Indication: INSOMNIA
     Dosage: 01 DOSAGE FORM (5 MG TABLETS), QD (BEFORE SLEEPING)
     Route: 048
     Dates: start: 20191111, end: 20191112
  2. NAUZELIN [Concomitant]
     Active Substance: DOMPERIDONE
     Indication: DIARRHOEA
     Dosage: 5 MILLIGRAM, UNK
     Route: 048
     Dates: start: 20191111, end: 20191112

REACTIONS (1)
  - Hallucination [Recovered/Resolved]

NARRATIVE: CASE EVENT DATE: 20191111
